FAERS Safety Report 10241040 (Version 1)
Quarter: 2014Q2

REPORT INFORMATION
  Report Type: Spontaneous
  Country: FR (occurrence: FR)
  Receive Date: 20140617
  Receipt Date: 20140617
  Transmission Date: 20141212
  Serious: Yes (Death, Other)
  Sender: FDA-Public Use
  Company Number: FR-MALLINCKRODT-T201402493

PATIENT
  Age: 84 Year
  Sex: Male

DRUGS (12)
  1. OFIRMEV [Suspect]
     Indication: FEMUR FRACTURE
     Dosage: 4 GRAM 1 DAY
     Route: 042
     Dates: start: 20140410, end: 20140410
  2. PARACETAMOL [Suspect]
     Indication: FEMUR FRACTURE
     Route: 048
  3. CEFAZOLINE [Suspect]
     Indication: PROPHYLAXIS
     Dosage: 3 GRAM 1 DAY
     Route: 042
     Dates: start: 20140415, end: 20140417
  4. EUPANTOL [Suspect]
     Indication: PRODUCT USED FOR UNKNOWN INDICATION
     Dosage: 20 MILLIGRAM 1 DAY
     Route: 065
     Dates: end: 20140425
  5. SECTRAL [Concomitant]
  6. CORVASAL [Concomitant]
  7. LOXEN [Concomitant]
  8. TAHOR [Concomitant]
  9. PREVISCAN [Concomitant]
  10. LASILIX [Concomitant]
  11. TOPALGIC [Concomitant]
  12. LOVENOX [Concomitant]

REACTIONS (3)
  - Agranulocytosis [Fatal]
  - Sepsis [Fatal]
  - Mucosal inflammation [Unknown]
